FAERS Safety Report 9788792 (Version 2)
Quarter: 2014Q1

REPORT INFORMATION
  Report Type: Report from Study
  Country: JP (occurrence: JP)
  Receive Date: 20131230
  Receipt Date: 20140117
  Transmission Date: 20141002
  Serious: Yes (Other)
  Sender: FDA-Public Use
  Company Number: JP-GLAXOSMITHKLINE-B0940455A

PATIENT
  Age: 77 Year
  Sex: Male

DRUGS (23)
  1. ARZERRA [Suspect]
     Indication: B-CELL SMALL LYMPHOCYTIC LYMPHOMA
     Dosage: 300MG PER DAY
     Route: 042
     Dates: start: 20131024, end: 20131024
  2. ARZERRA [Suspect]
     Indication: B-CELL SMALL LYMPHOCYTIC LYMPHOMA
     Dosage: 2000MG PER DAY
     Route: 042
     Dates: start: 20131031, end: 20131031
  3. ARZERRA [Suspect]
     Indication: B-CELL SMALL LYMPHOCYTIC LYMPHOMA
     Dosage: 2000MG PER DAY
     Route: 042
     Dates: start: 20131112, end: 20131112
  4. ARZERRA [Suspect]
     Indication: B-CELL SMALL LYMPHOCYTIC LYMPHOMA
     Dosage: 2000MG PER DAY
     Route: 042
     Dates: start: 20131119, end: 20131119
  5. ARZERRA [Suspect]
     Indication: B-CELL SMALL LYMPHOCYTIC LYMPHOMA
     Dosage: 2000MG PER DAY
     Route: 042
     Dates: start: 20131126, end: 20131126
  6. DEXART [Concomitant]
     Indication: PREMEDICATION
     Dosage: 13.2MG PER DAY
     Dates: start: 20131024, end: 20131024
  7. DEXART [Concomitant]
     Indication: PREMEDICATION
     Dosage: 13.2MG PER DAY
     Dates: start: 20131031, end: 20131031
  8. DEXART [Concomitant]
     Indication: PREMEDICATION
     Dosage: 13.2MG PER DAY
     Dates: start: 20131112, end: 20131112
  9. DEXART [Concomitant]
     Indication: PREMEDICATION
     Dosage: 13.2MG PER DAY
     Dates: start: 20131119, end: 20131119
  10. DEXART [Concomitant]
     Indication: PREMEDICATION
     Dosage: 13.2MG PER DAY
     Dates: start: 20131126, end: 20131126
  11. ACETAMINOPHEN [Concomitant]
     Indication: PREMEDICATION
     Dosage: 400MG PER DAY
     Route: 048
     Dates: start: 20131024, end: 20131024
  12. ACETAMINOPHEN [Concomitant]
     Indication: PREMEDICATION
     Dosage: 400MG PER DAY
     Route: 048
     Dates: start: 20131031, end: 20131031
  13. ACETAMINOPHEN [Concomitant]
     Indication: PREMEDICATION
     Dosage: 400MG PER DAY
     Route: 048
     Dates: start: 20131112, end: 20131112
  14. ACETAMINOPHEN [Concomitant]
     Indication: PREMEDICATION
     Dosage: 400MG PER DAY
     Route: 048
     Dates: start: 20131119, end: 20131119
  15. ACETAMINOPHEN [Concomitant]
     Indication: PREMEDICATION
     Dosage: 400MG PER DAY
     Route: 048
     Dates: start: 20131126, end: 20131126
  16. POLARAMINE [Concomitant]
     Indication: PREMEDICATION
     Dosage: 2MG PER DAY
     Route: 065
     Dates: start: 20131024, end: 20131024
  17. POLARAMINE [Concomitant]
     Indication: PREMEDICATION
     Dosage: 2MG PER DAY
     Route: 065
     Dates: start: 20131031, end: 20131031
  18. POLARAMINE [Concomitant]
     Indication: PREMEDICATION
     Dosage: 2MG PER DAY
     Route: 065
     Dates: start: 20131112, end: 20131112
  19. POLARAMINE [Concomitant]
     Indication: PREMEDICATION
     Dosage: 2MG PER DAY
     Route: 065
     Dates: start: 20131119, end: 20131119
  20. POLARAMINE [Concomitant]
     Indication: PREMEDICATION
     Dosage: 2MG PER DAY
     Route: 065
     Dates: start: 20131126, end: 20131126
  21. PREDNISOLONE [Concomitant]
     Indication: B-CELL SMALL LYMPHOCYTIC LYMPHOMA
     Route: 065
  22. FLUCONAZOLE [Concomitant]
     Indication: INFECTION PROPHYLAXIS
     Route: 065
  23. BAKTAR [Concomitant]
     Indication: INFECTION PROPHYLAXIS
     Dosage: 1G TWO TIMES PER WEEK
     Route: 048

REACTIONS (3)
  - Hypoxia [Recovered/Resolved]
  - Hypoxia [Recovered/Resolved]
  - Infusion site extravasation [Unknown]
